FAERS Safety Report 19587927 (Version 2)
Quarter: 2021Q4

REPORT INFORMATION
  Report Type: Report from Study
  Country: CN (occurrence: CN)
  Receive Date: 20210721
  Receipt Date: 20211213
  Transmission Date: 20220303
  Serious: Yes (Hospitalization)
  Sender: FDA-Public Use
  Company Number: CN-KARYOPHARM-2021KPT000640

PATIENT
  Age: 67 Year
  Sex: Male
  Weight: 68.5 kg

DRUGS (11)
  1. SELINEXOR [Suspect]
     Active Substance: SELINEXOR
     Indication: Peripheral T-cell lymphoma unspecified refractory
     Dosage: 60 MG (C1D2)
     Route: 048
     Dates: start: 20210331, end: 20210331
  2. SELINEXOR [Suspect]
     Active Substance: SELINEXOR
     Indication: Angiocentric lymphoma
     Dosage: 40 MG (C2D2)
     Route: 048
     Dates: start: 20210421, end: 20210421
  3. SELINEXOR [Suspect]
     Active Substance: SELINEXOR
     Dosage: 20 MG (C3D1)
     Route: 048
     Dates: start: 20210511, end: 20210511
  4. GEMCITABINE [Suspect]
     Active Substance: GEMCITABINE
     Indication: Peripheral T-cell lymphoma unspecified refractory
     Dosage: 1000 MG (C1D1)
     Route: 042
     Dates: start: 20210330, end: 20210330
  5. GEMCITABINE [Suspect]
     Active Substance: GEMCITABINE
     Indication: Angiocentric lymphoma
     Dosage: 1000 MG (C2D1)
     Route: 042
     Dates: start: 20210420, end: 20210420
  6. GEMCITABINE [Suspect]
     Active Substance: GEMCITABINE
     Dosage: 770 MG (C2D2)
     Route: 042
     Dates: start: 20210421, end: 20210421
  7. GEMCITABINE [Suspect]
     Active Substance: GEMCITABINE
     Dosage: 1350 MG (C3D1)
     Route: 042
     Dates: start: 20210511, end: 20210511
  8. OXALIPLATIN [Suspect]
     Active Substance: OXALIPLATIN
     Indication: Peripheral T-cell lymphoma unspecified refractory
     Dosage: 136.6 MG (C1D1)
     Route: 042
     Dates: start: 20210330, end: 20210330
  9. OXALIPLATIN [Suspect]
     Active Substance: OXALIPLATIN
     Indication: Angiocentric lymphoma
     Dosage: 130.1 MG (C2D1)
     Route: 042
     Dates: start: 20210420, end: 20210420
  10. OXALIPLATIN [Suspect]
     Active Substance: OXALIPLATIN
     Dosage: 100 MG (C2D2)
     Route: 042
     Dates: start: 20210421, end: 20210421
  11. OXALIPLATIN [Suspect]
     Active Substance: OXALIPLATIN
     Dosage: 180 MG (C3D1)
     Route: 042
     Dates: start: 20210511, end: 20210511

REACTIONS (1)
  - Fatigue [Recovered/Resolved]

NARRATIVE: CASE EVENT DATE: 20210428
